FAERS Safety Report 8763463 (Version 2)
Quarter: 2012Q4

REPORT INFORMATION
  Report Type: 
  Country: US (occurrence: US)
  Receive Date: 20120831
  Receipt Date: 20120910
  Transmission Date: 20130627
  Serious: Yes (Death)
  Sender: FDA-Public Use
  Company Number: US-BIOGENIDEC-2012BI033011

PATIENT
  Age: 62 Year
  Sex: Female

DRUGS (1)
  1. TYSABRI [Suspect]
     Indication: MULTIPLE SCLEROSIS
     Route: 042
     Dates: start: 20091125

REACTIONS (1)
  - Myocardial infarction [Fatal]
